FAERS Safety Report 6066363-9 (Version None)
Quarter: 2009Q1

REPORT INFORMATION
  Report Type: 
  Country: None (occurrence: None)
  Receive Date: 20090203
  Receipt Date: 20090118
  Transmission Date: 20090719
  Serious: Yes (Hospitalization)
  Sender: FDA-Public Use
  Company Number: 230627K09USA

PATIENT
  Age: 48 Year
  Sex: Female

DRUGS (4)
  1. REBIF [Suspect]
     Indication: MULTIPLE SCLEROSIS
     Dosage: 44 MCG, 3 IN 1 WEEKS, SUBCUANEOUS
     Dates: start: 20061103
  2. MUSCLE RELAXER (MUSCLE RELAXANTS) [Concomitant]
  3. CELEBREX [Concomitant]
  4. SOMA [Concomitant]

REACTIONS (6)
  - ASTHENIA [None]
  - DEPRESSION [None]
  - OVERDOSE [None]
  - PAIN [None]
  - SUICIDE ATTEMPT [None]
  - UPPER RESPIRATORY TRACT INFECTION [None]
